FAERS Safety Report 19105227 (Version 2)
Quarter: 2021Q2

REPORT INFORMATION
  Report Type: Spontaneous
  Country: US (occurrence: US)
  Receive Date: 20210407
  Receipt Date: 20210408
  Transmission Date: 20210717
  Serious: Yes (Hospitalization, Disabling, Other)
  Sender: FDA-Public Use
  Company Number: US-SA-2021SA107560

PATIENT
  Sex: Female

DRUGS (2)
  1. LANTUS SOLOSTAR [Suspect]
     Active Substance: INSULIN GLARGINE
     Dosage: SHE DOESN^T USE THE INSULIN DAILY
     Route: 065
     Dates: start: 2020
  2. LANTUS SOLOSTAR [Suspect]
     Active Substance: INSULIN GLARGINE
     Indication: DIABETES MELLITUS
     Dosage: 25 IU, QD
     Route: 065

REACTIONS (12)
  - Inappropriate schedule of product administration [Unknown]
  - Visual impairment [Unknown]
  - Lung disorder [Unknown]
  - Illness [Unknown]
  - Therapeutic response delayed [Unknown]
  - Disability [Unknown]
  - Blood glucose decreased [Unknown]
  - Intentional dose omission [Unknown]
  - Expired product administered [Unknown]
  - Dizziness [Unknown]
  - Chronic obstructive pulmonary disease [Unknown]
  - Overweight [Unknown]

NARRATIVE: CASE EVENT DATE: 2020
